FAERS Safety Report 6065998-7 (Version None)
Quarter: 2009Q1

REPORT INFORMATION
  Report Type: 
  Country: None (occurrence: None)
  Receive Date: 20090205
  Receipt Date: 20090127
  Transmission Date: 20090719
  Serious: Yes (Life-Threatening, Hospitalization)
  Sender: FDA-Public Use
  Company Number: RU-SOLVAY-00309000226

PATIENT
  Age: 16054 Day
  Sex: Male

DRUGS (3)
  1. CREON [Suspect]
     Indication: PANCREATIC ENZYMES DECREASED
     Dosage: DAILY DOSE: UNKNOWN, AS USED: 1 TAB, FREQUENCY: AS NEEDED
     Route: 048
     Dates: start: 20081101, end: 20081114
  2. TAVEGIL [Concomitant]
     Indication: URTICARIA
     Dosage: DAILY DOSE: 2 DOSAGE FORM
     Route: 065
     Dates: start: 20081114
  3. DUSPATALIN 200 MG [Suspect]
     Indication: BILIARY DYSKINESIA
     Dosage: DAILY DOSE: 400 MILLIGRAM(S)
     Route: 048
     Dates: start: 20081101, end: 20081114

REACTIONS (2)
  - ANAPHYLACTIC SHOCK [None]
  - URTICARIA [None]
